FAERS Safety Report 9232037 (Version 1)
Quarter: 2013Q2

REPORT INFORMATION
  Report Type: Spontaneous
  Country: US (occurrence: US)
  Receive Date: 20130415
  Receipt Date: 20130415
  Transmission Date: 20140414
  Serious: No
  Sender: FDA-Public Use
  Company Number: US-PFIZER INC-2013114297

PATIENT
  Age: 58 Year
  Sex: Female
  Weight: 88 kg

DRUGS (1)
  1. LEVOXYL [Suspect]
     Indication: THYROID HORMONE REPLACEMENT THERAPY
     Dosage: 125 UG, 1X/DAY
     Route: 048
     Dates: start: 200607

REACTIONS (4)
  - Palpitations [Unknown]
  - Product quality issue [Unknown]
  - Nausea [Recovering/Resolving]
  - Abdominal discomfort [Recovering/Resolving]
